FAERS Safety Report 16972754 (Version 1)
Quarter: 2019Q4

REPORT INFORMATION
  Report Type: Spontaneous
  Country: US (occurrence: US)
  Receive Date: 20191030
  Receipt Date: 20191030
  Transmission Date: 20200122
  Serious: No
  Sender: FDA-Public Use
  Company Number: US-JNJFOC-20191034535

PATIENT
  Sex: Female
  Weight: 45.4 kg

DRUGS (1)
  1. PEPCID AC [Suspect]
     Active Substance: FAMOTIDINE
     Indication: GASTROOESOPHAGEAL REFLUX DISEASE
     Dosage: 2 TABLETS 1 FOR BREAKFAST AND 1 FOR EVENING TWICE A DAY
     Route: 048

REACTIONS (1)
  - Heart rate increased [Not Recovered/Not Resolved]
